FAERS Safety Report 18363212 (Version 1)
Quarter: 2020Q4

REPORT INFORMATION
  Report Type: Spontaneous
  Country: US (occurrence: US)
  Receive Date: 20201008
  Receipt Date: 20201008
  Transmission Date: 20210114
  Serious: Yes (Death)
  Sender: FDA-Public Use
  Company Number: US-PURDUE-USA-2020-0169587

PATIENT
  Sex: Female

DRUGS (3)
  1. MS CONTIN [Suspect]
     Active Substance: MORPHINE SULFATE
     Indication: SPINAL PAIN
     Dosage: 150 MG, DAILY
     Dates: start: 1998
  2. OXYCONTIN [Suspect]
     Active Substance: OXYCODONE HYDROCHLORIDE
     Indication: SPINAL PAIN
     Dosage: UNK
     Route: 048
     Dates: start: 1998
  3. ENDOCET [Suspect]
     Active Substance: ACETAMINOPHEN\OXYCODONE HYDROCHLORIDE
     Indication: SPINAL PAIN
     Dosage: UNK

REACTIONS (12)
  - Mental impairment [Fatal]
  - Obesity [Fatal]
  - Anxiety [Fatal]
  - Dermatitis [Fatal]
  - Oedema [Fatal]
  - Diabetes mellitus inadequate control [Fatal]
  - Hypertension [Fatal]
  - Depression [Fatal]
  - Pain [Fatal]
  - Obstructive airways disorder [Fatal]
  - Soft tissue disorder [Fatal]
  - Delirium [Fatal]
